FAERS Safety Report 21523804 (Version 1)
Quarter: 2022Q4

REPORT INFORMATION
  Report Type: Spontaneous
  Country: SE (occurrence: SE)
  Receive Date: 20221029
  Receipt Date: 20221029
  Transmission Date: 20230113
  Serious: Yes (Hospitalization)
  Sender: FDA-Public Use
  Company Number: None

PATIENT
  Age: 60 Year
  Sex: Female
  Weight: 66 kg

DRUGS (2)
  1. ROSUVASTATIN [Suspect]
     Active Substance: ROSUVASTATIN
     Indication: Blood cholesterol increased
     Dosage: ROSUVASTATIN TEVA 40 MG FILM-COATED TABLET, FREQUENCY TIME : 1 DAY, DURATION : 74 DAYS
     Dates: start: 20220716, end: 20220928
  2. EZETIMIB STADA [Concomitant]
     Indication: Product used for unknown indication
     Dosage: 10 MILLIGRAM DAILY; 10 MG 1 TABLET IN THE MORNING, EZETIMIB STADA 10 MG TABLET
     Dates: start: 20220615, end: 20220928

REACTIONS (3)
  - Neck pain [Recovered/Resolved]
  - Headache [Recovered/Resolved]
  - Nausea [Recovered/Resolved]

NARRATIVE: CASE EVENT DATE: 20220909
